FAERS Safety Report 7069673-1 (Version None)
Quarter: 2010Q4

REPORT INFORMATION
  Report Type: 
  Country: None (occurrence: None)
  Receive Date: 20101028
  Receipt Date: 20100607
  Transmission Date: 20110411
  Serious: No
  Sender: FDA-Public Use
  Company Number: US-WYE-H15070710

PATIENT
  Sex: Female

DRUGS (1)
  1. NORPLANT SYSTEM [Suspect]
     Dosage: 6 CAPSULES
     Route: 058
     Dates: start: 19960101

REACTIONS (1)
  - INCORRECT DRUG ADMINISTRATION DURATION [None]
